FAERS Safety Report 6941870-2 (Version None)
Quarter: 2010Q3

REPORT INFORMATION
  Report Type: 
  Country: None (occurrence: None)
  Receive Date: 20100826
  Receipt Date: 20100817
  Transmission Date: 20110219
  Serious: Yes (Life-Threatening, Hospitalization, Other)
  Sender: FDA-Public Use
  Company Number: JP-PFIZER INC-2010098122

PATIENT
  Age: 53 Year
  Sex: Male
  Weight: 53 kg

DRUGS (4)
  1. SUNITINIB MALATE [Suspect]
     Indication: RENAL CELL CARCINOMA
     Dosage: 50 MG, 1X/DAY
     Route: 048
     Dates: start: 20100202, end: 20100222
  2. DEPAKENE [Concomitant]
     Indication: CONVULSION
     Dosage: 400 MG, 2X/DAY
     Route: 048
     Dates: start: 20100110, end: 20100312
  3. RINDERON [Concomitant]
     Indication: BRAIN OEDEMA
     Dosage: 1 G, 1X/DAY
     Route: 048
     Dates: start: 20100110, end: 20100423
  4. TAKEPRON [Concomitant]
     Indication: PROPHYLAXIS
     Dosage: 15 MG, 1X/DAY
     Route: 048
     Dates: start: 20091201

REACTIONS (2)
  - HYPERTENSION [None]
  - RENAL FAILURE ACUTE [None]
